FAERS Safety Report 6007241-0 (Version None)
Quarter: 2008Q4

REPORT INFORMATION
  Report Type: 
  Country: None (occurrence: None)
  Receive Date: 20081217
  Receipt Date: 20080207
  Transmission Date: 20090506
  Serious: No
  Sender: FDA-Public Use
  Company Number: US-ASTRAZENECA-2008UW02642

PATIENT
  Sex: Female

DRUGS (2)
  1. CRESTOR [Suspect]
     Indication: BLOOD CHOLESTEROL INCREASED
     Route: 048
     Dates: start: 20080125, end: 20080204
  2. OXYBUTININ [Concomitant]
     Dates: end: 20080204

REACTIONS (3)
  - EYE PAIN [None]
  - MYALGIA [None]
  - VISION BLURRED [None]
